FAERS Safety Report 20089721 (Version 1)
Quarter: 2021Q4

REPORT INFORMATION
  Report Type: Report from Study
  Country: IN (occurrence: IN)
  Receive Date: 20211119
  Receipt Date: 20211119
  Transmission Date: 20220304
  Serious: Yes (Other)
  Sender: FDA-Public Use
  Company Number: IN-NOVARTISPH-PHHY2019IN073349

PATIENT
  Sex: Male

DRUGS (4)
  1. GLIVEC [Interacting]
     Active Substance: IMATINIB MESYLATE
     Indication: Chronic myeloid leukaemia
     Dosage: 400 MG
     Route: 065
  2. GLIVEC [Interacting]
     Active Substance: IMATINIB MESYLATE
     Dosage: 800 MG
     Route: 065
  3. GLIVEC [Interacting]
     Active Substance: IMATINIB MESYLATE
     Dosage: 600 MG (1 X 400 MG, 2 X 100 MG TABLETS))
     Route: 065
  4. GLIVEC [Interacting]
     Active Substance: IMATINIB MESYLATE
     Dosage: 800 MG
     Route: 065

REACTIONS (5)
  - Cytopenia [Unknown]
  - Blast crisis in myelogenous leukaemia [Unknown]
  - Tuberculosis [Unknown]
  - Drug interaction [Unknown]
  - Drug intolerance [Unknown]
